FAERS Safety Report 18383134 (Version 1)
Quarter: 2020Q4

REPORT INFORMATION
  Report Type: Spontaneous
  Country: US (occurrence: US)
  Receive Date: 20201014
  Receipt Date: 20201014
  Transmission Date: 20210114
  Serious: Yes (Other)
  Sender: FDA-Public Use
  Company Number: US-BAYER-2020-218045

PATIENT
  Age: 20 Year
  Sex: Female

DRUGS (4)
  1. ACETYLSALICYLIC ACID [Suspect]
     Active Substance: ASPIRIN
  2. AMOXICILLIN. [Concomitant]
     Active Substance: AMOXICILLIN
  3. CLINDAMYCIN. [Concomitant]
     Active Substance: CLINDAMYCIN
  4. GENTAMICIN. [Concomitant]
     Active Substance: GENTAMICIN

REACTIONS (4)
  - Contraindicated product administered [None]
  - Postpartum haemorrhage [None]
  - Maternal exposure during pregnancy [None]
  - Product monitoring error [None]
